FAERS Safety Report 7268539-1 (Version None)
Quarter: 2011Q1

REPORT INFORMATION
  Report Type: 
  Country: None (occurrence: None)
  Receive Date: 20110201
  Receipt Date: 20110121
  Transmission Date: 20110831
  Serious: Yes (Hospitalization)
  Sender: FDA-Public Use
  Company Number: US-JNJFOC-20101209071

PATIENT
  Sex: Male
  Weight: 94.8 kg

DRUGS (19)
  1. TRAZODONE HCL [Concomitant]
     Indication: INSOMNIA
     Route: 048
  2. OMEPRAZOLE [Concomitant]
     Indication: HYPERCHLORHYDRIA
     Route: 048
  3. CLONIDINE [Concomitant]
     Route: 048
  4. BENICAR [Concomitant]
     Indication: BLOOD PRESSURE
     Route: 048
  5. ALLOPURINOL [Concomitant]
     Indication: GOUT
     Route: 048
  6. VITAMIN B-12 [Concomitant]
     Indication: ENERGY INCREASED
     Route: 030
  7. PROPRANOLOL [Concomitant]
     Indication: BLOOD PRESSURE
     Route: 048
  8. TESTOSTERONE [Concomitant]
     Indication: HORMONE REPLACEMENT THERAPY
     Route: 030
  9. COLCHICINE [Concomitant]
     Indication: PAIN
     Route: 048
  10. VENLAFAXINE [Concomitant]
     Indication: DEPRESSION
     Route: 048
  11. TERBINAFINE HCL [Concomitant]
     Route: 048
  12. HYDROCODONE [Concomitant]
     Indication: PAIN
     Route: 048
  13. REMICADE [Suspect]
     Indication: RHEUMATOID ARTHRITIS
     Route: 042
  14. REMICADE [Suspect]
     Indication: CROHN'S DISEASE
     Route: 042
  15. PREDNISONE [Concomitant]
     Indication: ARTHRITIS
     Route: 048
  16. LACTULOSE [Concomitant]
     Indication: CONSTIPATION
     Route: 048
  17. AMITRIPTYLINE HCL [Concomitant]
     Indication: INSOMNIA
     Route: 048
  18. MORPHINE [Concomitant]
     Indication: PAIN
     Route: 048
  19. GABAPENTIN [Concomitant]
     Route: 048

REACTIONS (8)
  - PYREXIA [None]
  - BLOOD MAGNESIUM DECREASED [None]
  - BLOOD POTASSIUM DECREASED [None]
  - BACK DISORDER [None]
  - STAPHYLOCOCCAL INFECTION [None]
  - BLOOD PRESSURE DECREASED [None]
  - WEIGHT DECREASED [None]
  - FALL [None]
